FAERS Safety Report 16053461 (Version 1)
Quarter: 2019Q1

REPORT INFORMATION
  Report Type: Spontaneous
  Country: DE (occurrence: DE)
  Receive Date: 20190308
  Receipt Date: 20190308
  Transmission Date: 20190418
  Serious: Yes (Other)
  Sender: FDA-Public Use
  Company Number: DE-MYLANLABS-2019M1021305

PATIENT
  Age: 31 Year
  Sex: Female

DRUGS (1)
  1. ESCITALOPRAM [Suspect]
     Active Substance: ESCITALOPRAM OXALATE
     Indication: PRODUCT USED FOR UNKNOWN INDICATION
     Dosage: 20MG/ML; ONE DROP ON 21. AND 22. AUG. 2018
     Route: 065
     Dates: start: 20180821

REACTIONS (5)
  - Dizziness [Unknown]
  - Delusion [Unknown]
  - Heart rate irregular [Unknown]
  - Headache [Unknown]
  - Mania [Unknown]
